FAERS Safety Report 23163835 (Version 1)
Quarter: 2023Q4

REPORT INFORMATION
  Report Type: Spontaneous
  Country: US (occurrence: None)
  Receive Date: 20231108
  Receipt Date: 20231108
  Transmission Date: 20240109
  Serious: No
  Sender: FDA-Public Use
  Company Number: None

PATIENT
  Age: 64 Year
  Sex: Female
  Weight: 62.1 kg

DRUGS (8)
  1. PAXLOVID [Suspect]
     Active Substance: NIRMATRELVIR\RITONAVIR
     Indication: COVID-19
     Dates: start: 20231028, end: 20231101
  2. PROPANOL (PROPRANOLOL HYDROCHLORIDE) [Concomitant]
     Active Substance: PROPRANOLOL HYDROCHLORIDE
  3. EPIPEN [Concomitant]
     Active Substance: EPINEPHRINE
  4. ALBUTEROL [Concomitant]
     Active Substance: ALBUTEROL
  5. VITAMINS [Concomitant]
     Active Substance: VITAMINS
  6. VITAMIN D3 [Concomitant]
     Active Substance: CHOLECALCIFEROL
  7. JWH-018 [Concomitant]
     Active Substance: JWH-018
  8. PRASTERONE [Concomitant]
     Active Substance: PRASTERONE

REACTIONS (9)
  - COVID-19 [None]
  - Dry mouth [None]
  - Lacrimation increased [None]
  - Vision blurred [None]
  - Pyrexia [None]
  - Fatigue [None]
  - Urticaria [None]
  - Herpes zoster [None]
  - Pruritus [None]

NARRATIVE: CASE EVENT DATE: 20231104
